FAERS Safety Report 16054649 (Version 2)
Quarter: 2019Q1

REPORT INFORMATION
  Report Type: Spontaneous
  Country: US (occurrence: US)
  Receive Date: 20190309
  Receipt Date: 20190320
  Transmission Date: 20190418
  Serious: No
  Sender: FDA-Public Use
  Company Number: US-BIOGEN-2019BI00705842

PATIENT
  Sex: Female

DRUGS (3)
  1. WELLBUTRIN [Concomitant]
     Active Substance: BUPROPION HYDROCHLORIDE
     Route: 065
  2. TYSABRI [Suspect]
     Active Substance: NATALIZUMAB
     Indication: MULTIPLE SCLEROSIS
     Route: 065
     Dates: start: 20180525, end: 20180801
  3. RECLAST [Concomitant]
     Active Substance: ZOLEDRONIC ACID
     Route: 065

REACTIONS (3)
  - Balance disorder [Not Recovered/Not Resolved]
  - Fatigue [Not Recovered/Not Resolved]
  - Memory impairment [Unknown]
